FAERS Safety Report 8307452-5 (Version None)
Quarter: 2012Q2

REPORT INFORMATION
  Report Type: 
  Country: None (occurrence: None)
  Receive Date: 20120424
  Receipt Date: 20040922
  Transmission Date: 20120825
  Serious: Yes (Hospitalization)
  Sender: FDA-Public Use
  Company Number: US-TEVA-2009008982

PATIENT
  Sex: Male

DRUGS (2)
  1. AVINZA [Concomitant]
     Dosage: 60 MILLIGRAM;
  2. ACTIQ [Suspect]
     Dosage: 2400 MICROGRAM;
     Route: 002

REACTIONS (2)
  - PALPITATIONS [None]
  - CHEST PAIN [None]
